FAERS Safety Report 15976460 (Version 2)
Quarter: 2019Q1

REPORT INFORMATION
  Report Type: Spontaneous
  Country: US (occurrence: US)
  Receive Date: 20190218
  Receipt Date: 20190311
  Transmission Date: 20190418
  Serious: Yes (Other)
  Sender: FDA-Public Use
  Company Number: US-DSJP-DSU-2017-124133

PATIENT

DRUGS (8)
  1. METFORMIN [Concomitant]
     Active Substance: METFORMIN HYDROCHLORIDE
     Indication: GLUCOSE TOLERANCE IMPAIRED
     Dosage: 500 MG, QD
     Route: 048
  2. DIOVAN [Suspect]
     Active Substance: VALSARTAN
     Indication: HYPERTENSION
     Dosage: 320 MG, QD
     Route: 048
     Dates: start: 201706
  3. PREDNISONE. [Suspect]
     Active Substance: PREDNISONE
     Indication: WHEEZING
     Dosage: 10 MG, QD
     Route: 048
     Dates: start: 2019, end: 201902
  4. BENICAR HCT [Suspect]
     Active Substance: HYDROCHLOROTHIAZIDE\OLMESARTAN MEDOXOMIL
     Indication: HYPERTENSION
     Dosage: 1 DF [40/25 MG], QD
     Route: 048
  5. MONTELUKAST [Suspect]
     Active Substance: MONTELUKAST SODIUM
     Indication: WHEEZING
     Dosage: 10 MG, QD
     Route: 048
     Dates: start: 2019, end: 201902
  6. DOXYCYCLINE. [Suspect]
     Active Substance: DOXYCYCLINE
     Indication: WHEEZING
     Dosage: 100 MG, BID
     Route: 048
     Dates: start: 2019, end: 201902
  7. OLMESARTAN HCT AG [Suspect]
     Active Substance: HYDROCHLOROTHIAZIDE\OLMESARTAN MEDOXOMIL
     Indication: HYPERTENSION
     Dosage: 1 DF [40/25 MG], QD
     Route: 048
     Dates: start: 2017, end: 201706
  8. OMEGA 3                            /01334101/ [Concomitant]
     Active Substance: OMEGA-3 FATTY ACIDS
     Indication: BLOOD CHOLESTEROL INCREASED
     Dosage: UNK
     Route: 065

REACTIONS (17)
  - Haemorrhage [Unknown]
  - Musculoskeletal pain [Unknown]
  - Arthritis [Unknown]
  - Dry throat [Unknown]
  - Chest pain [Unknown]
  - Dizziness [Unknown]
  - Chest pain [Unknown]
  - Wheezing [Unknown]
  - Blood glucose increased [Unknown]
  - Cough [Unknown]
  - Pruritus [Unknown]
  - Eye pain [Unknown]
  - Rash [Unknown]
  - Joint swelling [Unknown]
  - Hypoaesthesia oral [Unknown]
  - Palpitations [Unknown]
  - Hypoaesthesia oral [Not Recovered/Not Resolved]

NARRATIVE: CASE EVENT DATE: 2015
